FAERS Safety Report 4741386-8 (Version None)
Quarter: 2005Q3

REPORT INFORMATION
  Report Type: 
  Country: None (occurrence: None)
  Receive Date: 20050808
  Receipt Date: 20050726
  Transmission Date: 20060218
  Serious: Yes (Hospitalization)
  Sender: FDA-Public Use
  Company Number: 216384

PATIENT
  Age: 15 Year
  Sex: Male
  Weight: 46.5 kg

DRUGS (6)
  1. NUTROPIN AQ [Suspect]
     Indication: GROWTH HORMONE DEFICIENCY
     Dosage: 4 MG, QD, SUBCUTANEOUS
     Route: 058
     Dates: start: 20020312, end: 20050725
  2. CLARITIN [Concomitant]
  3. CONCERTA [Concomitant]
  4. DEPAKOTE [Concomitant]
  5. MELATONIN (MELATONIN) [Concomitant]
  6. PROTONIX [Concomitant]

REACTIONS (3)
  - AGGRESSION [None]
  - ANTISOCIAL BEHAVIOUR [None]
  - CONDITION AGGRAVATED [None]
